FAERS Safety Report 8557612-3 (Version None)
Quarter: 2012Q3

REPORT INFORMATION
  Report Type: 
  Country: None (occurrence: None)
  Receive Date: 20120801
  Receipt Date: 20120723
  Transmission Date: 20120928
  Serious: Yes (Other)
  Sender: FDA-Public Use
  Company Number: US-009507513-1207USA010533

PATIENT

DRUGS (4)
  1. LIPITOR [Suspect]
     Dosage: 10 MG, UNK
     Route: 048
  2. LOVASTATIN [Suspect]
  3. ATORVASTATIN CALCIUM [Suspect]
     Dosage: 20 MG, QD
     Route: 048
  4. ZOCOR [Suspect]

REACTIONS (3)
  - DRUG INTOLERANCE [None]
  - BLOOD CHOLESTEROL ABNORMAL [None]
  - AMNESIA [None]
